FAERS Safety Report 17899451 (Version 1)
Quarter: 2020Q2

REPORT INFORMATION
  Report Type: Spontaneous
  Country: US (occurrence: US)
  Receive Date: 20200615
  Receipt Date: 20200615
  Transmission Date: 20200714
  Serious: No
  Sender: FDA-Public Use
  Company Number: None

PATIENT
  Age: 60 Year
  Sex: Male
  Weight: 119 kg

DRUGS (1)
  1. CALCIPOTRIENE (CALCIPOTRIENE 0.005% CREAM, TOP) [Suspect]
     Active Substance: CALCIPOTRIENE
     Indication: PSORIASIS
     Dosage: APPLY   OTHER
     Route: 061
     Dates: end: 20171001

REACTIONS (3)
  - Erythema [None]
  - Angioedema [None]
  - Swollen tongue [None]

NARRATIVE: CASE EVENT DATE: 20171001
